FAERS Safety Report 5823026-X (Version None)
Quarter: 2008Q3

REPORT INFORMATION
  Report Type: 
  Country: None (occurrence: None)
  Receive Date: 20080725
  Receipt Date: 20080717
  Transmission Date: 20090109
  Serious: Yes (Other)
  Sender: FDA-Public Use
  Company Number: ES-ROCHE-576414

PATIENT
  Age: 74 Year
  Sex: Male

DRUGS (6)
  1. ROCALTROL [Suspect]
     Indication: HYPERPARATHYROIDISM SECONDARY
     Route: 048
     Dates: start: 20071018
  2. DOXAZOSIN MESYLATE [Suspect]
     Route: 048
     Dates: start: 20071018, end: 20080404
  3. PREVENCOR [Suspect]
     Indication: DRUG USE FOR UNKNOWN INDICATION
     Dosage: FORM: FILM COATED TABLET
     Route: 048
     Dates: start: 20071018
  4. ASPIRIN [Concomitant]
     Dosage: FORM: COATED TABLETS
     Route: 048
     Dates: start: 20070403
  5. ARTEDIL [Concomitant]
     Route: 048
     Dates: start: 20070914
  6. VALS [Concomitant]
     Dosage: FORM: FILM COATED  TABLET
     Route: 048
     Dates: start: 20060101

REACTIONS (1)
  - URINARY INCONTINENCE [None]
